FAERS Safety Report 6692112-7 (Version None)
Quarter: 2010Q2

REPORT INFORMATION
  Report Type: 
  Country: None (occurrence: None)
  Receive Date: 20100422
  Receipt Date: 20090526
  Transmission Date: 20101027
  Serious: No
  Sender: FDA-Public Use
  Company Number: US-ASTRAZENECA-2009UW13355

PATIENT
  Sex: Female

DRUGS (5)
  1. METOPROLOL SUCCINATE [Suspect]
     Route: 048
  2. METOPROLOL TARTRATE [Suspect]
     Route: 048
  3. CRESTOR [Concomitant]
     Route: 048
  4. PLENDIL [Concomitant]
     Route: 048
  5. SYNTHROID [Concomitant]

REACTIONS (3)
  - FATIGUE [None]
  - ILL-DEFINED DISORDER [None]
  - MEDICATION ERROR [None]
